FAERS Safety Report 26146946 (Version 1)
Quarter: 2025Q4

REPORT INFORMATION
  Report Type: Spontaneous
  Country: US (occurrence: US)
  Receive Date: 20251211
  Receipt Date: 20251211
  Transmission Date: 20260117
  Serious: Yes (Other)
  Sender: PFIZER
  Company Number: US-PFIZER INC-PV202500143915

PATIENT
  Age: 59 Year
  Sex: Male

DRUGS (1)
  1. DAPTOMYCIN [Suspect]
     Active Substance: DAPTOMYCIN
     Indication: Staphylococcal osteomyelitis
     Dosage: UNK

REACTIONS (3)
  - Pneumonitis [Recovering/Resolving]
  - Rhabdomyolysis [Recovering/Resolving]
  - Off label use [Unknown]
